FAERS Safety Report 18654073 (Version 1)
Quarter: 2020Q4

REPORT INFORMATION
  Report Type: Spontaneous
  Country: US (occurrence: US)
  Receive Date: 20201223
  Receipt Date: 20201223
  Transmission Date: 20210114
  Serious: Yes (Death)
  Sender: FDA-Public Use
  Company Number: None

PATIENT
  Age: 90 Year
  Sex: Female
  Weight: 54 kg

DRUGS (1)
  1. APIXABAN [Suspect]
     Active Substance: APIXABAN

REACTIONS (8)
  - Gastrointestinal haemorrhage [None]
  - International normalised ratio decreased [None]
  - Hypovolaemic shock [None]
  - Haemoglobin decreased [None]
  - Hypoxia [None]
  - Haematocrit decreased [None]
  - Prothrombin time prolonged [None]
  - Haematemesis [None]

NARRATIVE: CASE EVENT DATE: 20201103
